FAERS Safety Report 25396275 (Version 1)
Quarter: 2025Q2

REPORT INFORMATION
  Report Type: Spontaneous
  Country: US (occurrence: US)
  Receive Date: 20250604
  Receipt Date: 20250604
  Transmission Date: 20250716
  Serious: No
  Sender: PFIZER
  Company Number: US-PFIZER INC-202500113499

PATIENT
  Age: 59 Year
  Sex: Female

DRUGS (26)
  1. XELJANZ XR [Suspect]
     Active Substance: TOFACITINIB CITRATE
     Indication: Rheumatoid arthritis
     Dosage: 11 MG, DAILY
     Route: 048
  2. CLOBETASOL PROPIONATE [Concomitant]
     Active Substance: CLOBETASOL PROPIONATE
  3. VALTREX [Concomitant]
     Active Substance: VALACYCLOVIR HYDROCHLORIDE
  4. TRIAMCINOLONE ACETONIDE [Concomitant]
     Active Substance: TRIAMCINOLONE ACETONIDE
  5. METAMUCIL 3-IN-1 [Concomitant]
     Dosage: UNK UNK, DAILY
  6. DIPHENHYDRAMINE [Concomitant]
     Active Substance: DIPHENHYDRAMINE
  7. KETOCONAZOLE [Concomitant]
     Active Substance: KETOCONAZOLE
  8. CREATININE [Concomitant]
     Active Substance: CREATININE
  9. VITAMINS [Concomitant]
     Active Substance: VITAMINS
     Dosage: UNK, DAILY
  10. REFISSA [Concomitant]
     Active Substance: TRETINOIN
  11. TYLENOL [Concomitant]
     Active Substance: ACETAMINOPHEN
  12. OPZELURA [Concomitant]
     Active Substance: RUXOLITINIB PHOSPHATE
  13. BUTALBITAL, ACETAMINOPHEN, AND CAFFEINE [Concomitant]
     Active Substance: ACETAMINOPHEN\BUTALBITAL\CAFFEINE
  14. FLUCONAZOLE [Concomitant]
     Active Substance: FLUCONAZOLE
  15. SUCRALFATE [Concomitant]
     Active Substance: SUCRALFATE
  16. METHOTREXATE [Concomitant]
     Active Substance: METHOTREXATE
  17. TACROLIMUS [Concomitant]
     Active Substance: TACROLIMUS
  18. FOLIC ACID [Concomitant]
     Active Substance: FOLIC ACID
  19. BIMATOPROST [Concomitant]
     Active Substance: BIMATOPROST
  20. PREDNISONE [Concomitant]
     Active Substance: PREDNISONE
  21. PREDNISONE [Concomitant]
     Active Substance: PREDNISONE
  22. HERBALS\TURMERIC [Concomitant]
     Active Substance: HERBALS\TURMERIC
  23. DIAZEPAM [Concomitant]
     Active Substance: DIAZEPAM
  24. ALBUTEROL SULFATE [Concomitant]
     Active Substance: ALBUTEROL SULFATE
  25. XYZAL [Concomitant]
     Active Substance: LEVOCETIRIZINE DIHYDROCHLORIDE
  26. ACYCLOVIR [Concomitant]
     Active Substance: ACYCLOVIR

REACTIONS (1)
  - Drug ineffective [Not Recovered/Not Resolved]
